FAERS Safety Report 5085621-8 (Version None)
Quarter: 2006Q3

REPORT INFORMATION
  Report Type: 
  Country: None (occurrence: None)
  Receive Date: 20060731
  Receipt Date: 20060119
  Transmission Date: 20061208
  Serious: Yes (Other)
  Sender: FDA-Public Use
  Company Number: 200512893BWH

PATIENT
  Age: 80 Year
  Sex: Female

DRUGS (2)
  1. AVELOX IV [Suspect]
     Indication: PNEUMONIA
     Dosage: SEE IMAGE
     Route: 042
     Dates: start: 20041201
  2. AVELOX IV [Suspect]
     Indication: PNEUMONIA
     Dosage: SEE IMAGE
     Route: 042
     Dates: start: 20041201

REACTIONS (2)
  - BLOOD PRESSURE DECREASED [None]
  - HYPOTENSION [None]
